FAERS Safety Report 16271531 (Version 1)
Quarter: 2019Q2

REPORT INFORMATION
  Report Type: Spontaneous
  Country: GB (occurrence: GB)
  Receive Date: 20190503
  Receipt Date: 20190503
  Transmission Date: 20190711
  Serious: Yes (Life-Threatening, Hospitalization)
  Sender: FDA-Public Use
  Company Number: GB-TEVA-2019-GB-1043975

PATIENT
  Age: 40 Year
  Sex: Male

DRUGS (14)
  1. MIRTAZAPINE. [Concomitant]
     Active Substance: MIRTAZAPINE
     Route: 048
  2. DIAZEPAM. [Suspect]
     Active Substance: DIAZEPAM
     Dosage: 4 MILLIGRAM DAILY;
     Route: 048
  3. HYLO-FORTE [Concomitant]
     Active Substance: HYALURONATE SODIUM
     Dosage: AS NECESSARY BOTH EYES
     Route: 050
  4. LEVETIRACETAM. [Concomitant]
     Active Substance: LEVETIRACETAM
     Route: 048
  5. CARBOCISTEINE [Concomitant]
     Active Substance: CARBOCYSTEINE
     Route: 048
  6. THIAMINE. [Concomitant]
     Active Substance: THIAMINE
     Route: 048
  7. RANITIDINE. [Concomitant]
     Active Substance: RANITIDINE
     Route: 048
  8. VITAMIN B COMPOUND STRONG [Concomitant]
     Active Substance: NIACINAMIDE\PYRIDOXINE HYDROCHLORIDE\RIBOFLAVIN\THIAMINE HYDROCHLORIDE
     Route: 048
  9. MATRIFEN [Suspect]
     Active Substance: FENTANYL
     Route: 062
     Dates: end: 20181203
  10. HYOSCINE BUTYLBROMIDE [Concomitant]
     Active Substance: BUTYLSCOPOLAMINE BROMIDE
     Route: 048
  11. PARACETAMOL [Concomitant]
     Active Substance: ACETAMINOPHEN
     Dosage: 1-2 FOUR TIMES A DAY AS NECESSARY.
     Route: 048
  12. OXYCODONE [Suspect]
     Active Substance: OXYCODONE
     Dosage: 5-7.5MG PRN?5MG/5ML
     Route: 048
     Dates: end: 20181203
  13. PREGABALIN. [Concomitant]
     Active Substance: PREGABALIN
     Route: 048
  14. FOLIC ACID. [Concomitant]
     Active Substance: FOLIC ACID
     Route: 048

REACTIONS (1)
  - Respiratory failure [Not Recovered/Not Resolved]

NARRATIVE: CASE EVENT DATE: 20181203
